FAERS Safety Report 21189769 (Version 1)
Quarter: 2022Q3

REPORT INFORMATION
  Report Type: Spontaneous
  Country: CN (occurrence: CN)
  Receive Date: 20220809
  Receipt Date: 20220809
  Transmission Date: 20221026
  Serious: Yes (Other)
  Sender: FDA-Public Use
  Company Number: CN-PFIZER INC-PV202200038275

PATIENT
  Age: 92 Year
  Sex: Female

DRUGS (1)
  1. CARDURA XL [Suspect]
     Active Substance: DOXAZOSIN MESYLATE
     Indication: Hypertension
     Dosage: 4 MG, 1X/DAY
     Route: 048
     Dates: start: 20220728, end: 20220802

REACTIONS (3)
  - Orthostatic hypotension [Recovering/Resolving]
  - Blood pressure fluctuation [Unknown]
  - Labile blood pressure [Unknown]

NARRATIVE: CASE EVENT DATE: 20220801
